FAERS Safety Report 15348447 (Version 1)
Quarter: 2018Q3

REPORT INFORMATION
  Report Type: Spontaneous
  Country: DE (occurrence: DE)
  Receive Date: 20180904
  Receipt Date: 20180904
  Transmission Date: 20181010
  Serious: Yes (Other)
  Sender: FDA-Public Use
  Company Number: DE-ALLERGAN-1842496US

PATIENT
  Age: 56 Year
  Weight: 60 kg

DRUGS (1)
  1. FOSFOMYCIN TROMETHAMINE ? BP [Suspect]
     Active Substance: FOSFOMYCIN TROMETHAMINE
     Indication: URINARY TRACT INFECTION
     Dosage: 8 G, SINGLE
     Route: 048
     Dates: start: 20180803, end: 20180803

REACTIONS (5)
  - Dyspnoea [Unknown]
  - Throat tightness [Unknown]
  - Incorrect dose administered [Unknown]
  - Dermatitis allergic [Unknown]
  - Urticaria [Unknown]

NARRATIVE: CASE EVENT DATE: 20180803
